FAERS Safety Report 8550137-0 (Version None)
Quarter: 2012Q3

REPORT INFORMATION
  Report Type: 
  Country: None (occurrence: None)
  Receive Date: 20120730
  Receipt Date: 20110412
  Transmission Date: 20120928
  Serious: No
  Sender: FDA-Public Use
  Company Number: US-ALLERGAN-0907561US

PATIENT
  Age: 84 Year
  Sex: Female

DRUGS (3)
  1. LUMIGAN [Suspect]
     Indication: GLAUCOMA
     Dosage: UNK
     Route: 047
  2. RESTASIS [Suspect]
     Indication: DRY EYE
     Dosage: UNK, UNK
     Route: 047
     Dates: start: 20090501
  3. COMBIGAN [Concomitant]
     Indication: GLAUCOMA
     Route: 047

REACTIONS (4)
  - EYE PRURITUS [None]
  - EYE IRRITATION [None]
  - EYE DISCHARGE [None]
  - OCULAR HYPERAEMIA [None]
